FAERS Safety Report 5514750-7 (Version None)
Quarter: 2007Q4

REPORT INFORMATION
  Report Type: 
  Country: None (occurrence: None)
  Receive Date: 20071113
  Receipt Date: 20071106
  Transmission Date: 20080405
  Serious: Yes (Life-Threatening, Other)
  Sender: FDA-Public Use
  Company Number: PHRM2007FR02533

PATIENT
  Age: 22 Year
  Sex: Female

DRUGS (4)
  1. LEPONEX [Suspect]
     Route: 048
     Dates: start: 19940510, end: 19940612
  2. LYSANXIA [Suspect]
     Dosage: 90 DF PER DAY
     Route: 048
     Dates: start: 19940530, end: 19940612
  3. TRIMEPRAZINE TAB [Suspect]
     Dosage: 20 DF DAILY
     Route: 048
     Dates: start: 19940510, end: 19940612
  4. TEGRETOL [Concomitant]
     Dosage: 2 DF DAILY
     Route: 048
     Dates: start: 19940510, end: 19940612

REACTIONS (5)
  - COLECTOMY [None]
  - ILEECTOMY [None]
  - KLEBSIELLA INFECTION [None]
  - NECROTISING COLITIS [None]
  - STAPHYLOCOCCAL BACTERAEMIA [None]
